FAERS Safety Report 7772438 (Version 2)
Quarter: 2013Q1

REPORT INFORMATION
  Report Type: Spontaneous
  Country: NL (occurrence: NL)
  Receive Date: 20110125
  Receipt Date: 20130213
  Transmission Date: 20140127
  Serious: Yes (Other)
  Sender: FDA-Public Use
  Company Number: NL-RANBAXY-2011R1-41118

PATIENT
  Age: 76 Year
  Sex: Male

DRUGS (3)
  1. FLECAINIDE [Suspect]
     Indication: ARRHYTHMIA
     Dosage: UNK
     Route: 065
  2. ALENDRONIC ACID [Concomitant]
     Indication: OSTEOPOROSIS
     Dosage: UNK
     Route: 065
  3. FLECAINIDE [Suspect]
     Indication: ALLERGY TEST
     Dosage: UNK
     Route: 048

REACTIONS (1)
  - Drug eruption [Recovered/Resolved]
